FAERS Safety Report 13877657 (Version 1)
Quarter: 2017Q3

REPORT INFORMATION
  Report Type: Report from Study
  Country: US (occurrence: US)
  Receive Date: 20170817
  Receipt Date: 20170817
  Transmission Date: 20171127
  Serious: Yes (Other)
  Sender: FDA-Public Use
  Company Number: US-BAYER-2017-152020

PATIENT
  Age: 66 Year
  Sex: Male

DRUGS (8)
  1. PROCHLORPERAZINE MALEATE. [Concomitant]
     Active Substance: PROCHLORPERAZINE MALEATE
  2. WARFARIN SODIUM. [Concomitant]
     Active Substance: WARFARIN SODIUM
  3. WARFARIN SODIUM. [Concomitant]
     Active Substance: WARFARIN SODIUM
     Dosage: LOWER DOSE
  4. LISINOPRIL. [Concomitant]
     Active Substance: LISINOPRIL
  5. STIVARGA [Suspect]
     Active Substance: REGORAFENIB
     Indication: COLON CANCER
     Dosage: 160 MG DAILY FOR 21 DAYS
     Route: 048
     Dates: start: 20170719
  6. MINOCYCLINE HYDROCHLORIDE. [Concomitant]
     Active Substance: MINOCYCLINE HYDROCHLORIDE
  7. NIFEDIPINE. [Concomitant]
     Active Substance: NIFEDIPINE
  8. ONDANSETRON HYDROCHLORIDE. [Concomitant]
     Active Substance: ONDANSETRON HYDROCHLORIDE

REACTIONS (2)
  - International normalised ratio increased [Not Recovered/Not Resolved]
  - Fatigue [Not Recovered/Not Resolved]

NARRATIVE: CASE EVENT DATE: 20170801
